FAERS Safety Report 9333342 (Version 1)
Quarter: 2013Q2

REPORT INFORMATION
  Report Type: Spontaneous
  Country: AU (occurrence: None)
  Receive Date: 20130604
  Receipt Date: 20130604
  Transmission Date: 20140414
  Serious: Yes (Hospitalization)
  Sender: FDA-Public Use
  Company Number: 2013AP005714

PATIENT
  Age: 77 Year
  Sex: Female

DRUGS (1)
  1. AMIODARONE [Suspect]

REACTIONS (2)
  - Drug-induced liver injury [None]
  - Cholestatic liver injury [None]
